FAERS Safety Report 6410539-5 (Version None)
Quarter: 2009Q4

REPORT INFORMATION
  Report Type: 
  Country: None (occurrence: None)
  Receive Date: 20091022
  Receipt Date: 20091019
  Transmission Date: 20100525
  Serious: Yes (Hospitalization)
  Sender: FDA-Public Use
  Company Number: FR-BRISTOL-MYERS SQUIBB COMPANY-14822423

PATIENT
  Age: 68 Year
  Sex: Male

DRUGS (6)
  1. APROVEL FILM-COATED TABS 300 MG [Suspect]
     Indication: HYPERTENSION
  2. METFORMIN HCL [Suspect]
  3. TAHOR [Suspect]
  4. FLUDEX [Suspect]
  5. DETENSIEL [Suspect]
  6. ASPEGIC 1000 [Suspect]

REACTIONS (2)
  - HEPATIC CIRRHOSIS [None]
  - THROMBOCYTOPENIA [None]
